FAERS Safety Report 6638080-5 (Version None)
Quarter: 2010Q1

REPORT INFORMATION
  Report Type: 
  Country: None (occurrence: None)
  Receive Date: 20100317
  Receipt Date: 20100305
  Transmission Date: 20100710
  Serious: Yes (Hospitalization, Other)
  Sender: FDA-Public Use
  Company Number: DE-PFIZER INC-2010014957

PATIENT
  Age: 47 Year
  Sex: Male
  Weight: 84.5 kg

DRUGS (4)
  1. SOMATROPIN [Suspect]
     Indication: HYPOPITUITARISM
     Dosage: 0.5 MG, 1X/DAY
     Route: 058
     Dates: start: 19970801, end: 19970801
  2. SOMATROPIN [Suspect]
     Dosage: 0.5 MG, 1X/DAY
     Route: 058
     Dates: start: 20020101, end: 20100129
  3. DESMOGALEN [Concomitant]
     Dosage: 0.1 UNK, 1X/DAY
     Route: 045
  4. TESTOSTERONE UNDECANOATE [Concomitant]
     Dosage: 1000 MG, EVERY 3 MONTHS
     Route: 030

REACTIONS (2)
  - CHONDROSARCOMA [None]
  - CHONDROSARCOMA RECURRENT [None]
